FAERS Safety Report 8909203 (Version 1)
Quarter: 2013Q1

REPORT INFORMATION
  Report Type: Spontaneous
  Country: US (occurrence: None)
  Receive Date: 20121113
  Receipt Date: 20121113
  Transmission Date: 20140127
  Serious: Yes (Hospitalization)
  Sender: FDA-Public Use
  Company Number: None

PATIENT
  Age: 49 Year
  Sex: Male
  Weight: 77.2 kg

DRUGS (8)
  1. INVESTIGATIONAL DRUG [Suspect]
     Dosage: DAYS 1, 4, 8, 11, 15, 18
     Route: 042
     Dates: start: 20120910, end: 20121009
  2. DOXAZOSIN [Concomitant]
  3. HYDROXYZINE HCL [Concomitant]
  4. KETOROLAC TROMETHAMINE OPTH [Concomitant]
  5. LOMOTIL (DIPHENOXYLATE W/ATROPINE) [Concomitant]
  6. LORAZEPAM [Concomitant]
  7. SCOPOLAMINE HYDROBROMIDE [Concomitant]
  8. DILAUDID (HYDROMORPHONE HCL) [Concomitant]

REACTIONS (5)
  - Nausea [None]
  - Vomiting [None]
  - Diarrhoea [None]
  - Fatigue [None]
  - Liver function test abnormal [None]
